FAERS Safety Report 6077860-4 (Version None)
Quarter: 2009Q1

REPORT INFORMATION
  Report Type: 
  Country: None (occurrence: None)
  Receive Date: 20090213
  Receipt Date: 20090205
  Transmission Date: 20090719
  Serious: Yes (Hospitalization)
  Sender: FDA-Public Use
  Company Number: US-JNJFOC-20090202724

PATIENT
  Age: 46 Year
  Sex: Female
  Weight: 108 kg

DRUGS (12)
  1. REMICADE [Suspect]
     Route: 042
  2. REMICADE [Suspect]
     Route: 042
  3. REMICADE [Suspect]
     Route: 042
  4. REMICADE [Suspect]
     Route: 042
  5. REMICADE [Suspect]
     Route: 042
  6. REMICADE [Suspect]
     Indication: CROHN'S DISEASE
     Route: 042
  7. PREDNISONE [Concomitant]
  8. METHOTREXATE [Concomitant]
  9. MESALAMINE [Concomitant]
  10. PAROXETINE HCL [Concomitant]
  11. QUESTRAN [Concomitant]
  12. LOPERAMIDE HCL [Concomitant]

REACTIONS (1)
  - HISTOPLASMOSIS [None]
